FAERS Safety Report 7233354-1 (Version None)
Quarter: 2011Q1

REPORT INFORMATION
  Report Type: 
  Country: None (occurrence: None)
  Receive Date: 20110119
  Receipt Date: 20110114
  Transmission Date: 20110831
  Serious: Yes (Hospitalization)
  Sender: FDA-Public Use
  Company Number: GB-ROCHE-749152

PATIENT
  Sex: Female
  Weight: 82.3 kg

DRUGS (5)
  1. METHOTREXATE [Suspect]
     Indication: RHEUMATOID ARTHRITIS
     Dosage: TEMPORARILY INTERRUPTED, DATE OF LAST DOSE PRIOR TO SAE: 13 DECEMBER 2010.
     Route: 048
     Dates: start: 20090721, end: 20101214
  2. PARACETAMOL [Concomitant]
     Dates: start: 20011201
  3. DICLOFENAC [Suspect]
     Route: 065
     Dates: start: 20010101, end: 20101214
  4. TOCILIZUMAB [Suspect]
     Indication: RHEUMATOID ARTHRITIS
     Dosage: FREQUENCY: 4 WEEKS, DATE OF LAST DOSE PRIOR TO SAE: 30 NOVEMBER 2010, DOSAGE FORM: 8MG/KG
     Route: 042
     Dates: start: 20090720
  5. FOLIC ACID [Concomitant]
     Dates: start: 20080227

REACTIONS (1)
  - VOMITING [None]
